FAERS Safety Report 20883196 (Version 1)
Quarter: 2022Q2

REPORT INFORMATION
  Report Type: Spontaneous
  Country: US (occurrence: None)
  Receive Date: 20220526
  Receipt Date: 20220526
  Transmission Date: 20220721
  Serious: Yes (Hospitalization)
  Sender: FDA-Public Use
  Company Number: None

PATIENT
  Age: 41 Year
  Sex: Male
  Weight: 87.1 kg

DRUGS (7)
  1. PAXLOVID [Suspect]
     Active Substance: NIRMATRELVIR\RITONAVIR
     Indication: COVID-19
     Dates: start: 20220209, end: 20220212
  2. TACROLIMUS [Concomitant]
     Active Substance: TACROLIMUS
  3. MYCOPHENOLATE MOFETIL [Concomitant]
     Active Substance: MYCOPHENOLATE MOFETIL
  4. PREDNISONE [Concomitant]
     Active Substance: PREDNISONE
  5. SULFAMETHOXAZOLE\TRIMETHOPRIM [Concomitant]
     Active Substance: SULFAMETHOXAZOLE\TRIMETHOPRIM
  6. VALGANCICLOVIR [Concomitant]
     Active Substance: VALGANCICLOVIR
  7. WARFARIN [Concomitant]
     Active Substance: WARFARIN

REACTIONS (10)
  - Nausea [None]
  - Diarrhoea [None]
  - Myalgia [None]
  - Hypophagia [None]
  - Malaise [None]
  - Urine output decreased [None]
  - Complications of transplanted kidney [None]
  - Immunosuppressant drug level [None]
  - Blood creatinine abnormal [None]
  - International normalised ratio increased [None]

NARRATIVE: CASE EVENT DATE: 20220211
